FAERS Safety Report 11098395 (Version 1)
Quarter: 2015Q2

REPORT INFORMATION
  Report Type: Spontaneous
  Country: SE (occurrence: SE)
  Receive Date: 20150507
  Receipt Date: 20150507
  Transmission Date: 20150821
  Serious: Yes (Hospitalization)
  Sender: FDA-Public Use
  Company Number: SE-TEVA-516021ISR

PATIENT
  Age: 94 Year
  Sex: Female

DRUGS (18)
  1. CANDEXETIL 8 MG TABLET [Concomitant]
  2. ALVEDON 665 MG MODIFIED-RELEASE TABLET [Concomitant]
     Dosage: MODIFIED-RELEASE TABLET
  3. DUROFERON 100 MG FE2+ [Concomitant]
     Dosage: PROLONGED-RELEASE TABLET
  4. EXELON 4,6 MG/24 TRANSDERMAL PATCH [Concomitant]
  5. DOLCONTIN 5 MG PROLONGED-RELEASE TABLET [Concomitant]
     Dosage: PROLONGED-RELEASE TABLET
  6. MONOKET OD 25 MG [Concomitant]
     Dosage: PROLONGED-RELEASE CAPSULE, HARD
  7. ARICEPT 5 MG FILM-COATED TABLET [Concomitant]
  8. MOVICOL [Concomitant]
     Active Substance: POLYETHYLENE GLYCOL 3350\POTASSIUM CHLORIDE\SODIUM BICARBONATE\SODIUM CHLORIDE
  9. CITALOPRAM SANDOZ 20 MG FILM-COATED TABLET [Concomitant]
  10. METOPROLOL [Concomitant]
     Active Substance: METOPROLOL
  11. VALACICLOVIR TEVA 500 MG FILM-COATED TABLET [Suspect]
     Active Substance: VALACYCLOVIR HYDROCHLORIDE
     Dosage: 3000 MILLIGRAM DAILY;
     Route: 048
     Dates: start: 20140723, end: 20140724
  12. PANTOPRAZOL ACTAVIS 20 MG ENTERIC TABLET [Concomitant]
     Active Substance: PANTOPRAZOLE SODIUM
     Dosage: ENTERIC TABLET
  13. TROMBYL 75 MG TABLET [Concomitant]
     Active Substance: ASPIRIN
  14. IMPUGAN 40 MG TABLET [Concomitant]
  15. OXYNORM 5 MG CAPSULE, HARD [Concomitant]
  16. KALCIPOS-D FORTE 500 MG/800 IE [Concomitant]
  17. ZOPIKLON MYLAN 5 MG FILM-COATED TABLET [Concomitant]
  18. ENALAPRIL MYLAN 2,5 MG TABLET [Concomitant]

REACTIONS (4)
  - Tremor [Recovered/Resolved]
  - Confusional state [Recovered/Resolved]
  - Agitation [Recovered/Resolved]
  - Balance disorder [Recovered/Resolved]

NARRATIVE: CASE EVENT DATE: 20140724
